FAERS Safety Report 9417836 (Version 1)
Quarter: 2013Q3

REPORT INFORMATION
  Report Type: Spontaneous
  Country: US (occurrence: US)
  Receive Date: 20130724
  Receipt Date: 20130724
  Transmission Date: 20140515
  Serious: No
  Sender: FDA-Public Use
  Company Number: US-BAUSCH-BL-2013-001246

PATIENT
  Age: 66 Year
  Sex: Female
  Weight: 77.18 kg

DRUGS (2)
  1. OPCON-A [Suspect]
     Indication: EYE PRURITUS
     Dosage: 2 DROPS IN EACH EYE; BEDTIME;OPHTHALMIC
     Route: 047
     Dates: start: 20130118, end: 20130121
  2. LEVOTHYROXINE [Concomitant]
     Indication: THYROID DISORDER

REACTIONS (4)
  - Eye swelling [Recovered/Resolved]
  - Ocular hyperaemia [Recovered/Resolved]
  - Eye discharge [Recovered/Resolved]
  - Urticaria [Recovered/Resolved]
